FAERS Safety Report 16377349 (Version 2)
Quarter: 2019Q2

REPORT INFORMATION
  Report Type: Spontaneous
  Country: US (occurrence: US)
  Receive Date: 20190531
  Receipt Date: 20190626
  Transmission Date: 20190711
  Serious: Yes (Other)
  Sender: FDA-Public Use
  Company Number: US-BAYER-2019-106014

PATIENT
  Age: 47 Year
  Sex: Female
  Weight: 73.1 kg

DRUGS (12)
  1. PROBIOTIC BLEND [Concomitant]
     Dosage: UNK UNK, QD
     Route: 048
  2. MULTIVITAMIN (16) [Concomitant]
     Active Substance: VITAMINS
     Dosage: UNK UNK, QD
     Route: 048
  3. MIRENA [Suspect]
     Active Substance: LEVONORGESTREL
     Indication: CONTRACEPTION
  4. DIGESTIVE ENZYMES [AMYLASE;CELLULASE;LIPASE;MALTASE;PROTEASE;SUCRA [Concomitant]
     Dosage: UNK UNK, TID
     Route: 048
  5. FERROUS SULFATE. [Concomitant]
     Active Substance: FERROUS SULFATE
     Dosage: 29 MG, TID
     Route: 048
  6. ADVIL [IBUPROFEN] [Concomitant]
     Active Substance: IBUPROFEN
     Dosage: UNK UNK, PRN
  7. MIRENA [Suspect]
     Active Substance: LEVONORGESTREL
     Indication: CONTRACEPTION
     Dosage: 20 MCG/24HR, CONT
     Route: 015
     Dates: start: 20190517, end: 20190524
  8. GLUTAGENICS [ALOE VERA LEAF;GLYCYRRHIZA GLABRA;LEVOGLUTAMIDE] [Concomitant]
     Dosage: UNK UNK, TID
  9. ZYRTEC [Concomitant]
     Active Substance: CETIRIZINE HYDROCHLORIDE
     Dosage: 5 MG, QD
     Route: 048
  10. VITAMIN D3 [Concomitant]
     Active Substance: CHOLECALCIFEROL
     Dosage: 5000 IU
     Route: 048
  11. THEANINE [Concomitant]
     Active Substance: THEANINE
     Dosage: 200 MG, TID
     Route: 048
  12. PHOSPHATIDYLSERINE [Concomitant]
     Dosage: 10 MG, QD
     Route: 048

REACTIONS (3)
  - Device expulsion [Recovered/Resolved]
  - Menstruation delayed [None]
  - Genital haemorrhage [None]

NARRATIVE: CASE EVENT DATE: 20190524
